FAERS Safety Report 9641765 (Version 2)
Quarter: 2013Q4

REPORT INFORMATION
  Report Type: Spontaneous
  Country: US (occurrence: US)
  Receive Date: 20131023
  Receipt Date: 20131230
  Transmission Date: 20140711
  Serious: Yes (Other)
  Sender: FDA-Public Use
  Company Number: US-ABBVIE-13P-163-1158896-00

PATIENT
  Age: 66 Year
  Sex: Male
  Weight: 67.19 kg

DRUGS (4)
  1. HUMIRA [Suspect]
     Indication: CROHN^S DISEASE
     Dates: start: 201201, end: 201201
  2. HUMIRA [Suspect]
     Dates: start: 201201, end: 201201
  3. HUMIRA [Suspect]
     Dates: start: 201201, end: 201205
  4. HUMIRA [Suspect]
     Dates: start: 201205, end: 201209

REACTIONS (9)
  - Ureteric obstruction [Recovered/Resolved]
  - Ureteric obstruction [Recovered/Resolved]
  - Ureteric obstruction [Recovered/Resolved]
  - Ureteric obstruction [Recovered/Resolved]
  - Ureteric obstruction [Recovered/Resolved]
  - Fungal infection [Recovered/Resolved]
  - Injection site pain [Recovered/Resolved]
  - Drug ineffective [Not Recovered/Not Resolved]
  - Anuria [Recovered/Resolved]
